FAERS Safety Report 24664842 (Version 1)
Quarter: 2024Q4

REPORT INFORMATION
  Report Type: Spontaneous
  Country: PT (occurrence: PT)
  Receive Date: 20241126
  Receipt Date: 20241126
  Transmission Date: 20250115
  Serious: Yes (Other)
  Sender: UCB
  Company Number: None

PATIENT
  Age: 55 Year
  Sex: Female

DRUGS (2)
  1. LEVETIRACETAM [Suspect]
     Active Substance: LEVETIRACETAM
     Indication: Epilepsy
     Dosage: 500 MILLIGRAM, 3X/DAY (TID)
     Dates: start: 20240805, end: 2024
  2. LEVETIRACETAM [Suspect]
     Active Substance: LEVETIRACETAM
     Dosage: 1 GRAM, 2X/DAY (BID)
     Dates: start: 202410

REACTIONS (2)
  - Pruritus [Recovered/Resolved]
  - Hand dermatitis [Recovered/Resolved]

NARRATIVE: CASE EVENT DATE: 20241001
